FAERS Safety Report 10112256 (Version 1)
Quarter: 2014Q2

REPORT INFORMATION
  Report Type: Report from Study
  Country: US (occurrence: US)
  Receive Date: 20140425
  Receipt Date: 20140425
  Transmission Date: 20141212
  Serious: Yes (Other)
  Sender: FDA-Public Use
  Company Number: PHEH2014US008068

PATIENT
  Age: 55 Year
  Sex: Female

DRUGS (7)
  1. AFINITOR [Suspect]
     Indication: ANGIOMYOLIPOMA
     Dosage: 10 MG, QD
     Route: 048
     Dates: start: 20121203
  2. SYNTHROID [Concomitant]
  3. CALCITROL [Concomitant]
  4. LAMICTAL [Concomitant]
  5. LATUDA [Concomitant]
  6. ATIVAN [Concomitant]
  7. RITALIN [Concomitant]

REACTIONS (4)
  - Cervical radiculopathy [Unknown]
  - Cervical spinal stenosis [Unknown]
  - Neck pain [Unknown]
  - Pain in extremity [Unknown]
